FAERS Safety Report 22324071 (Version 3)
Quarter: 2023Q2

REPORT INFORMATION
  Report Type: Report from Study
  Country: US (occurrence: US)
  Receive Date: 20230516
  Receipt Date: 20230606
  Transmission Date: 20230721
  Serious: No
  Sender: FDA-Public Use
  Company Number: US-002147023-NVSC2023US110877

PATIENT
  Sex: Female
  Weight: 95.692 kg

DRUGS (2)
  1. TREPROSTINIL [Suspect]
     Active Substance: TREPROSTINIL
     Indication: Pulmonary arterial hypertension
     Dosage: 10 NG/KG/ MIN, CONT
     Route: 042
     Dates: start: 20230508
  2. TADALAFIL [Concomitant]
     Active Substance: TADALAFIL
     Indication: Product used for unknown indication
     Dosage: UNK
     Route: 065

REACTIONS (8)
  - Dyspepsia [Unknown]
  - Skin discolouration [Unknown]
  - Headache [Unknown]
  - Myalgia [Unknown]
  - Pain in jaw [Unknown]
  - Nausea [Unknown]
  - Oedema peripheral [Unknown]
  - Adverse drug reaction [Unknown]
